FAERS Safety Report 24899114 (Version 2)
Quarter: 2025Q1

REPORT INFORMATION
  Report Type: Spontaneous
  Country: US (occurrence: US)
  Receive Date: 20250129
  Receipt Date: 20250219
  Transmission Date: 20250409
  Serious: No
  Sender: Kenvue
  Company Number: US-KENVUE-20250102060

PATIENT
  Sex: Male

DRUGS (1)
  1. MENS ROGAINE EXTRA STRENGTH [Suspect]
     Active Substance: MINOXIDIL
     Indication: Alopecia
     Route: 048

REACTIONS (4)
  - Incorrect route of product administration [Unknown]
  - Suspected counterfeit product [Unknown]
  - Product physical issue [Unknown]
  - Poor quality product administered [Unknown]
